FAERS Safety Report 7269338-7 (Version None)
Quarter: 2011Q1

REPORT INFORMATION
  Report Type: 
  Country: None (occurrence: None)
  Receive Date: 20110202
  Receipt Date: 20110119
  Transmission Date: 20110831
  Serious: Yes (Death)
  Sender: FDA-Public Use
  Company Number: FR-CELGENEUS-056-21880-10091659

PATIENT
  Sex: Male
  Weight: 77 kg

DRUGS (2)
  1. DEXAMETHASONE [Suspect]
     Route: 048
  2. REVLIMID [Suspect]
     Route: 048
     Dates: start: 20100806

REACTIONS (1)
  - GASTROINTESTINAL HAEMORRHAGE [None]
